FAERS Safety Report 15823797 (Version 2)
Quarter: 2019Q1

REPORT INFORMATION
  Report Type: Report from Study
  Country: US (occurrence: US)
  Receive Date: 20190114
  Receipt Date: 20190221
  Transmission Date: 20190417
  Serious: Yes (Life-Threatening, Other)
  Sender: FDA-Public Use
  Company Number: US-OTSUKA-2019_000533

PATIENT
  Age: 21 Year
  Sex: Male

DRUGS (3)
  1. TOLVAPTAN [Suspect]
     Active Substance: TOLVAPTAN
     Dosage: 15 MG, QD (IN THE AFTERNOON)
     Route: 048
     Dates: end: 20181225
  2. TOLVAPTAN [Suspect]
     Active Substance: TOLVAPTAN
     Indication: CONGENITAL CYSTIC KIDNEY DISEASE
     Dosage: 45 MG, QD (IN MORNING)
     Route: 048
     Dates: end: 20181225
  3. LISINOPRIL. [Concomitant]
     Active Substance: LISINOPRIL
     Indication: PRODUCT USED FOR UNKNOWN INDICATION
     Dosage: 10 MG, UNK
     Route: 065

REACTIONS (7)
  - Liver injury [Recovered/Resolved]
  - Abdominal pain [Recovered/Resolved]
  - Decreased appetite [Recovered/Resolved]
  - Therapy cessation [Unknown]
  - Vomiting [Recovered/Resolved]
  - Fatigue [Unknown]
  - Nausea [Recovered/Resolved]

NARRATIVE: CASE EVENT DATE: 201812
